FAERS Safety Report 7332403-X (Version None)
Quarter: 2011Q1

REPORT INFORMATION
  Report Type: 
  Country: None (occurrence: None)
  Receive Date: 20110304
  Receipt Date: 20110302
  Transmission Date: 20110831
  Serious: Yes (Life-Threatening, Other)
  Sender: FDA-Public Use
  Company Number: GB-ROCHE-762390

PATIENT
  Sex: Female

DRUGS (3)
  1. IBUPROFEN [Suspect]
     Route: 065
  2. MORPHINE [Suspect]
     Route: 065
  3. TORADOL [Suspect]
     Route: 065

REACTIONS (4)
  - HAEMORRHAGE [None]
  - DEAFNESS [None]
  - BLINDNESS [None]
  - BLOOD PRESSURE DECREASED [None]
